FAERS Safety Report 4790081-8 (Version None)
Quarter: 2005Q4

REPORT INFORMATION
  Report Type: 
  Country: None (occurrence: None)
  Receive Date: 20051006
  Receipt Date: 20050927
  Transmission Date: 20060501
  Serious: Yes (Hospitalization)
  Sender: FDA-Public Use
  Company Number: FR-JNJFOC-20050906344

PATIENT
  Sex: Male

DRUGS (1)
  1. RISPERDAL CONSTA [Suspect]
     Route: 030

REACTIONS (3)
  - PYREXIA [None]
  - RESPIRATORY DISORDER [None]
  - URTICARIA [None]
